FAERS Safety Report 20471662 (Version 2)
Quarter: 2022Q2

REPORT INFORMATION
  Report Type: Other
  Country: FR (occurrence: FR)
  Receive Date: 20220214
  Receipt Date: 20220420
  Transmission Date: 20220721
  Serious: Yes (Hospitalization, Other)
  Sender: FDA-Public Use
  Company Number: FR-Santen Oy-2022-FRA-000600

PATIENT
  Age: 42 Year
  Sex: Female

DRUGS (2)
  1. CYCLOSPORINE [Suspect]
     Active Substance: CYCLOSPORINE
     Indication: Conjunctivitis allergic
     Dosage: 2%
     Route: 047
  2. CYCLOSPORINE [Concomitant]
     Active Substance: CYCLOSPORINE
     Indication: Conjunctivitis allergic
     Route: 061

REACTIONS (1)
  - Malignant neoplasm of conjunctiva [Not Recovered/Not Resolved]

NARRATIVE: CASE EVENT DATE: 20200219
